FAERS Safety Report 5731478-9 (Version None)
Quarter: 2008Q2

REPORT INFORMATION
  Report Type: 
  Country: None (occurrence: None)
  Receive Date: 20080506
  Receipt Date: 20080422
  Transmission Date: 20081010
  Serious: Yes (Hospitalization)
  Sender: FDA-Public Use
  Company Number: 2008000959

PATIENT
  Sex: Male

DRUGS (2)
  1. ERLOTINIB(ERLOTINIB HCL)(TABLET)(ERLOTINIB HCL) [Suspect]
     Indication: PANCREATIC CARCINOMA
     Dosage: (150 MG,QD),ORAL
     Route: 048
     Dates: start: 20080410
  2. EVEROLIMUS (EVEROLIMUS) [Suspect]
     Indication: PANCREATIC CARCINOMA
     Dosage: (30 MG,WEEKLY),ORAL
     Route: 048
     Dates: start: 20080410

REACTIONS (6)
  - ANOREXIA [None]
  - ASTHENIA [None]
  - HYPERGLYCAEMIA [None]
  - HYPONATRAEMIA [None]
  - PYREXIA [None]
  - WHITE BLOOD CELL COUNT INCREASED [None]
